FAERS Safety Report 15555387 (Version 1)
Quarter: 2018Q4

REPORT INFORMATION
  Report Type: Spontaneous
  Country: FR (occurrence: FR)
  Receive Date: 20181026
  Receipt Date: 20181026
  Transmission Date: 20190205
  Serious: Yes (Hospitalization)
  Sender: FDA-Public Use
  Company Number: FR-TEVA-2018-FR-968344

PATIENT
  Age: 62 Year
  Sex: Female
  Weight: 58.5 kg

DRUGS (16)
  1. ANDROCUR [Concomitant]
     Active Substance: CYPROTERONE ACETATE
     Route: 065
  2. TRIDESONIT 0,05 POUR CENT, CR?ME [Concomitant]
  3. XANAX [Concomitant]
     Active Substance: ALPRAZOLAM
     Route: 065
  4. LORAZEPAM. [Concomitant]
     Active Substance: LORAZEPAM
     Route: 065
  5. FLUOROURACILE [Suspect]
     Active Substance: FLUOROURACIL
     Indication: ANAL CANCER
     Dosage: 1300 MG / DAY OVER 5 DAYS THEN 1100 MG DAILY OVER 5 DAYS
     Route: 042
     Dates: start: 20180625, end: 20180728
  6. FLAGYL [Concomitant]
     Active Substance: METRONIDAZOLE\METRONIDAZOLE HYDROCHLORIDE
     Route: 065
  7. PRIMPERAN [Concomitant]
     Active Substance: METOCLOPRAMIDE HYDROCHLORIDE
     Route: 065
  8. ESTREVA 0,1 %, GEL [Concomitant]
     Active Substance: ESTRADIOL
  9. PARACETAMOL [Concomitant]
     Active Substance: ACETAMINOPHEN
     Route: 065
  10. HIRUCREME, CR?ME [Concomitant]
  11. AMETYCINE [Suspect]
     Active Substance: MITOMYCIN
     Indication: ANAL CANCER
     Route: 042
     Dates: start: 20180625, end: 20180625
  12. PREDNISOLONE. [Concomitant]
     Active Substance: PREDNISOLONE
     Route: 065
  13. PLITICAN [Concomitant]
     Active Substance: ALIZAPRIDE HYDROCHLORIDE
     Route: 065
  14. SOLU-MEDROL [Concomitant]
     Active Substance: METHYLPREDNISOLONE SODIUM SUCCINATE
     Route: 065
  15. ROCEPHINE [Concomitant]
     Active Substance: CEFTRIAXONE SODIUM
     Route: 065
  16. MORPHINE [Concomitant]
     Active Substance: MORPHINE
     Route: 065

REACTIONS (1)
  - Acute febrile neutrophilic dermatosis [Recovering/Resolving]

NARRATIVE: CASE EVENT DATE: 20180805
